FAERS Safety Report 7342999-X (Version None)
Quarter: 2011Q1

REPORT INFORMATION
  Report Type: 
  Country: None (occurrence: None)
  Receive Date: 20110310
  Receipt Date: 20110303
  Transmission Date: 20110831
  Serious: Yes (Death, Other)
  Sender: FDA-Public Use
  Company Number: US-GENZYME-FLUD-1000833

PATIENT

DRUGS (14)
  1. CYCLOPHOSPHAMIDE [Suspect]
     Dosage: 250 MG/M2 ON DAYS 1 TO 3
     Route: 065
  2. FLUDARA [Suspect]
     Dosage: 25 MG/M2 ON DAYS 1 TO 3
     Route: 065
  3. FLUDARA [Suspect]
     Dosage: 25 MG/M2 ON DAYS  1 TO 3
     Route: 065
  4. FLUDARA [Suspect]
     Dosage: 25 MG/M2 ON DAYS  1 TO 3
     Route: 065
  5. CYCLOPHOSPHAMIDE [Suspect]
     Dosage: 250 MG/M2 ON DAYS 1 TO 3
     Route: 065
  6. FLUDARA [Suspect]
     Dosage: 25 MG/M2 ON DAYS 1 TO 3
     Route: 065
  7. CYCLOPHOSPHAMIDE [Suspect]
     Dosage: 250 MG/M2 ON DAYS 1 TO 3
     Route: 065
  8. OFATUMUMAB [Concomitant]
     Indication: CHRONIC LYMPHOCYTIC LEUKAEMIA
     Dosage: 300 MG, UNK
     Route: 065
  9. CYCLOPHOSPHAMIDE [Suspect]
     Dosage: 250 MG/M2 ON DAYS 1 TO 3
     Route: 065
  10. FLUDARA [Suspect]
     Indication: CHRONIC LYMPHOCYTIC LEUKAEMIA
     Dosage: 25 MG/M2 ON DAYS 2 TO 4
     Route: 065
  11. CYCLOPHOSPHAMIDE [Suspect]
     Indication: CHRONIC LYMPHOCYTIC LEUKAEMIA
     Dosage: 250 MG/M2 ON DAYS 2 TO 4
     Route: 065
  12. CYCLOPHOSPHAMIDE [Suspect]
     Dosage: 250 MG/M2 ON DAYS 1 TO 3
     Route: 065
  13. FLUDARA [Suspect]
     Dosage: 25 MG/M2 ON DAYS  1 TO 3
     Route: 065
  14. OFATUMUMAB [Concomitant]
     Dosage: 1000 MG ON DAY 1
     Route: 065

REACTIONS (2)
  - CHRONIC LYMPHOCYTIC LEUKAEMIA [None]
  - NEUTROPENIA [None]
